FAERS Safety Report 6980377-3 (Version None)
Quarter: 2010Q3

REPORT INFORMATION
  Report Type: 
  Country: None (occurrence: None)
  Receive Date: 20100914
  Receipt Date: 20090929
  Transmission Date: 20110219
  Serious: No
  Sender: FDA-Public Use
  Company Number: US-ABBOTT-09P-163-0600158-00

PATIENT
  Sex: Female
  Weight: 38.136 kg

DRUGS (1)
  1. DEPAKOTE [Suspect]
     Indication: PETIT MAL EPILEPSY
     Route: 048
     Dates: start: 20090912

REACTIONS (1)
  - FAECAL INCONTINENCE [None]
